FAERS Safety Report 9995393 (Version 1)
Quarter: 2014Q1

REPORT INFORMATION
  Report Type: Spontaneous
  Country: GB (occurrence: None)
  Receive Date: 20140307
  Receipt Date: 20140307
  Transmission Date: 20141002
  Serious: Yes (Life-Threatening, Hospitalization, Disabling)
  Sender: FDA-Public Use
  Company Number: AUR-APL-2014-02438

PATIENT
  Age: 74 Year
  Sex: Female

DRUGS (1)
  1. PRAMIPEXOLE (PRAMIPEXOLE) [Suspect]
     Indication: RESTLESS LEGS SYNDROME
     Route: 048
     Dates: start: 20100901, end: 20140101

REACTIONS (4)
  - Obsessive-compulsive disorder [None]
  - Pathological gambling [None]
  - Cerebrovascular accident [None]
  - Economic problem [None]
